FAERS Safety Report 5619647-X (Version None)
Quarter: 2008Q1

REPORT INFORMATION
  Report Type: 
  Country: None (occurrence: None)
  Receive Date: 20080206
  Receipt Date: 20080124
  Transmission Date: 20080703
  Serious: Yes (Hospitalization, Other)
  Sender: FDA-Public Use
  Company Number: 230907J08USA

PATIENT
  Age: 65 Year
  Sex: Female
  Weight: 104.3273 kg

DRUGS (9)
  1. REBIF [Suspect]
     Indication: MULTIPLE SCLEROSIS
     Dosage: 44 MCG, 3 IN 1 WEEKS, SUBCUTANEOUS
     Route: 058
     Dates: start: 20060516
  2. NEURONTIN [Concomitant]
  3. ASACOL [Concomitant]
  4. TRIAMTERENE AND HYDROCHLOROTHIAZIDE (DYAZIDE) [Concomitant]
  5. TRAZODONE HCL [Concomitant]
  6. BACLOFEN [Concomitant]
  7. NEXIUM [Concomitant]
  8. SIMVASTATIN [Concomitant]
  9. LIPITOR [Concomitant]

REACTIONS (6)
  - ABDOMINAL PAIN UPPER [None]
  - BLOOD CHOLESTEROL INCREASED [None]
  - BLOOD TRIGLYCERIDES INCREASED [None]
  - DIABETES MELLITUS [None]
  - HEPATIC STEATOSIS [None]
  - STOMACH DISCOMFORT [None]
